FAERS Safety Report 16775635 (Version 5)
Quarter: 2020Q4

REPORT INFORMATION
  Report Type: Spontaneous
  Country: JP (occurrence: JP)
  Receive Date: 20190905
  Receipt Date: 20201105
  Transmission Date: 20210113
  Serious: Yes (Hospitalization, Other)
  Sender: FDA-Public Use
  Company Number: JP-ASTRAZENECA-2019SF10937

PATIENT
  Age: 683 Month
  Sex: Female
  Weight: 49 kg

DRUGS (3)
  1. LYNPARZA [Suspect]
     Active Substance: OLAPARIB
     Indication: MALIGNANT PERITONEAL NEOPLASM
     Route: 048
     Dates: start: 20190507, end: 20190816
  2. LYNPARZA [Suspect]
     Active Substance: OLAPARIB
     Indication: OVARIAN CANCER
     Route: 048
     Dates: start: 20190507, end: 20190816
  3. GOSHAJINKIGAN [Concomitant]
     Active Substance: HERBALS
     Indication: HYPOAESTHESIA
     Route: 048
     Dates: start: 201704

REACTIONS (2)
  - Interstitial lung disease [Recovering/Resolving]
  - Ovarian cancer recurrent [Unknown]

NARRATIVE: CASE EVENT DATE: 201907
